FAERS Safety Report 5471872-7 (Version None)
Quarter: 2007Q3

REPORT INFORMATION
  Report Type: 
  Country: None (occurrence: None)
  Receive Date: 20070928
  Receipt Date: 20070731
  Transmission Date: 20080115
  Serious: No
  Sender: FDA-Public Use
  Company Number: US-BRISTOL-MYERS SQUIBB COMPANY-13846290

PATIENT
  Age: 73 Year
  Sex: Male

DRUGS (3)
  1. DEFINITY [Suspect]
     Route: 042
     Dates: start: 20070713, end: 20070713
  2. ASPIRIN [Concomitant]
  3. DIFLUCAN [Concomitant]

REACTIONS (4)
  - DIZZINESS [None]
  - HYPERHIDROSIS [None]
  - HYPOTENSION [None]
  - URTICARIA [None]
